FAERS Safety Report 7426861-X (Version None)
Quarter: 2011Q2

REPORT INFORMATION
  Report Type: 
  Country: None (occurrence: None)
  Receive Date: 20110415
  Receipt Date: 20110415
  Transmission Date: 20111010
  Serious: No
  Sender: FDA-Public Use
  Company Number: None

PATIENT
  Age: 64 Year

DRUGS (1)
  1. SYNTHROID [Suspect]
     Dosage: 50MCG, 2(TWO TABLET DAILY, #60, 03/14/2011, REF. X 5 ORDERED
     Dates: start: 20110314

REACTIONS (1)
  - UNEVALUABLE EVENT [None]
